FAERS Safety Report 14718783 (Version 2)
Quarter: 2018Q2

REPORT INFORMATION
  Report Type: Report from Study
  Country: CA (occurrence: CA)
  Receive Date: 20180405
  Receipt Date: 20180411
  Transmission Date: 20180711
  Serious: Yes (Hospitalization)
  Sender: FDA-Public Use
  Company Number: CA-ROCHE-1808933

PATIENT
  Age: 66 Year
  Sex: Female

DRUGS (7)
  1. RITUXAN [Suspect]
     Active Substance: RITUXIMAB
     Dosage: FIRST RECEIVED THROUGH?RPAP: 10-SEPT-2009, DAY 1,15
     Route: 042
     Dates: start: 20090910
  2. METHYLPREDNISOLONE. [Concomitant]
     Active Substance: METHYLPREDNISOLONE
     Indication: PREMEDICATION
     Route: 042
     Dates: start: 20090910
  3. RITUXAN [Suspect]
     Active Substance: RITUXIMAB
     Route: 042
     Dates: start: 20180328, end: 20180328
  4. ACETAMINOPHEN. [Concomitant]
     Active Substance: ACETAMINOPHEN
     Indication: PREMEDICATION
     Route: 048
     Dates: start: 20090910
  5. RITUXAN [Suspect]
     Active Substance: RITUXIMAB
     Route: 042
     Dates: start: 20180313
  6. RITUXAN [Suspect]
     Active Substance: RITUXIMAB
     Indication: RHEUMATOID ARTHRITIS
     Route: 042
     Dates: start: 20070207
  7. DIPHENHYDRAMINE HCL [Concomitant]
     Active Substance: DIPHENHYDRAMINE HYDROCHLORIDE
     Indication: PREMEDICATION
     Route: 048
     Dates: start: 20090910

REACTIONS (12)
  - Blood pressure systolic increased [Unknown]
  - Vomiting [Recovered/Resolved]
  - Viral infection [Unknown]
  - Infusion related reaction [Recovered/Resolved]
  - Oxygen saturation decreased [Unknown]
  - Heart rate decreased [Unknown]
  - Ecchymosis [Not Recovered/Not Resolved]
  - Chest pain [Recovered/Resolved]
  - Hypoaesthesia [Unknown]
  - Palpitations [Recovered/Resolved]
  - Fatigue [Not Recovered/Not Resolved]
  - Blood pressure systolic abnormal [Unknown]

NARRATIVE: CASE EVENT DATE: 201608
